FAERS Safety Report 14431462 (Version 1)
Quarter: 2018Q1

REPORT INFORMATION
  Report Type: Spontaneous
  Country: US (occurrence: US)
  Receive Date: 20180124
  Receipt Date: 20180124
  Transmission Date: 20180509
  Serious: No
  Sender: FDA-Public Use
  Company Number: US-PFIZER INC-2018030740

PATIENT
  Age: 48 Year
  Sex: Female
  Weight: 86.18 kg

DRUGS (5)
  1. GENVOYA [Concomitant]
     Active Substance: COBICISTAT\ELVITEGRAVIR\EMTRICITABINE\TENOFOVIR ALAFENAMIDE FUMARATE
     Indication: HIV INFECTION
     Dosage: UNK
  2. CLARADIN [Concomitant]
     Indication: SINUSITIS
     Dosage: 50MCG; 2 SPRAYS IN EACH NOSTRIL ONCE PER DAY
     Route: 045
  3. LYRICA [Suspect]
     Active Substance: PREGABALIN
     Indication: SCIATICA
     Dosage: 75 MG, 1X/DAY
     Route: 048
     Dates: start: 20171219
  4. CLARADIN [Concomitant]
     Indication: SINUSITIS
  5. VITAMIN B12 [Concomitant]
     Active Substance: CYANOCOBALAMIN
     Dosage: 500 MG, 1X/DAY
     Route: 048

REACTIONS (1)
  - Somnolence [Unknown]
